FAERS Safety Report 20172433 (Version 5)
Quarter: 2022Q2

REPORT INFORMATION
  Report Type: Spontaneous
  Country: JP (occurrence: JP)
  Receive Date: 20211210
  Receipt Date: 20220407
  Transmission Date: 20220721
  Serious: Yes (Hospitalization, Other)
  Sender: FDA-Public Use
  Company Number: JP-DSPHARMA-2021DSP019194

PATIENT
  Age: 53 Year
  Sex: Female
  Weight: 34 kg

DRUGS (11)
  1. LATUDA [Suspect]
     Active Substance: LURASIDONE HYDROCHLORIDE
     Indication: Schizophrenia
     Dosage: 40 MG, QD
     Route: 048
     Dates: start: 20210924, end: 20210927
  2. LATUDA [Suspect]
     Active Substance: LURASIDONE HYDROCHLORIDE
     Dosage: 80 MG, QD
     Route: 048
     Dates: start: 20210928, end: 20211003
  3. Benzalin [Concomitant]
     Indication: Insomnia
     Dosage: 5 MG, QD,BEFORE 2017/04
     Route: 048
     Dates: end: 20211006
  4. MAGNESIUM OXIDE [Concomitant]
     Active Substance: MAGNESIUM OXIDE
     Indication: Constipation
     Dosage: 660 MG, QD,BEFORE 2017/04
     Route: 048
     Dates: end: 20211006
  5. SENNOSIDES A AND B [Concomitant]
     Active Substance: SENNOSIDES A AND B
     Indication: Constipation
     Dosage: 24 MG, QD,BEFORE 2017/04
     Route: 048
     Dates: end: 20211006
  6. FERROUS FUMARATE [Concomitant]
     Active Substance: FERROUS FUMARATE
     Indication: Anaemia
     Dosage: 100 MG, QD,BEFORE 2017/04
     Route: 048
     Dates: end: 20211006
  7. ETHYL LOFLAZEPATE [Concomitant]
     Active Substance: ETHYL LOFLAZEPATE
     Indication: Anxiety
     Dosage: 2 MG, QD
     Route: 048
     Dates: start: 202002, end: 20211006
  8. PALIPERIDONE PALMITATE [Concomitant]
     Active Substance: PALIPERIDONE PALMITATE
     Indication: Schizophrenia
     Dosage: 150 MG, QD
     Route: 030
     Dates: start: 20200226, end: 20200226
  9. PALIPERIDONE PALMITATE [Concomitant]
     Active Substance: PALIPERIDONE PALMITATE
     Dosage: 100 MG, QD
     Route: 030
     Dates: start: 20200304, end: 20200304
  10. PALIPERIDONE PALMITATE [Concomitant]
     Active Substance: PALIPERIDONE PALMITATE
     Dosage: 75 MG, QD
     Route: 030
     Dates: start: 20200401, end: 20210603
  11. PALIPERIDONE PALMITATE [Concomitant]
     Active Substance: PALIPERIDONE PALMITATE
     Dosage: 50 MG, QD
     Route: 030
     Dates: start: 20210701, end: 20210828

REACTIONS (7)
  - Pneumonia aspiration [Recovered/Resolved]
  - Status epilepticus [Recovered/Resolved]
  - Salivary hypersecretion [Not Recovered/Not Resolved]
  - Fall [Unknown]
  - Skin abrasion [Unknown]
  - Cogwheel rigidity [Unknown]
  - Insomnia [Unknown]

NARRATIVE: CASE EVENT DATE: 20211003
